FAERS Safety Report 14222443 (Version 2)
Quarter: 2018Q1

REPORT INFORMATION
  Report Type: Spontaneous
  Country: DE (occurrence: DE)
  Receive Date: 20171124
  Receipt Date: 20180309
  Transmission Date: 20180508
  Serious: Yes (Disabling, Other)
  Sender: FDA-Public Use
  Company Number: DE-SUN PHARMACEUTICAL INDUSTRIES LTD-2017RR-155283

PATIENT
  Age: 63 Year
  Sex: Male
  Weight: 90 kg

DRUGS (2)
  1. CIPROFLOXACIN. [Suspect]
     Active Substance: CIPROFLOXACIN
     Indication: URINARY TRACT INFECTION
     Dosage: 750 MG, INFLAMMATION OF THE MIDDLE EAR
     Route: 048
     Dates: start: 20131201
  2. CIPROFLOXACIN. [Suspect]
     Active Substance: CIPROFLOXACIN
     Indication: MIDDLE EAR INFLAMMATION

REACTIONS (7)
  - Myalgia [Not Recovered/Not Resolved]
  - Tendon disorder [Not Recovered/Not Resolved]
  - Polyneuropathy [Recovered/Resolved with Sequelae]
  - Xerophthalmia [Not Recovered/Not Resolved]
  - Muscular weakness [Not Recovered/Not Resolved]
  - Cyst [Not Recovered/Not Resolved]
  - Prolapse [Not Recovered/Not Resolved]

NARRATIVE: CASE EVENT DATE: 20140201
